FAERS Safety Report 12709416 (Version 1)
Quarter: 2016Q3

REPORT INFORMATION
  Report Type: Spontaneous
  Country: US (occurrence: None)
  Receive Date: 20160901
  Receipt Date: 20160901
  Transmission Date: 20161109
  Serious: No
  Sender: FDA-Public Use
  Company Number: None

PATIENT
  Age: 49 Year
  Sex: Male
  Weight: 106.4 kg

DRUGS (1)
  1. SAXAGLIPTIN [Suspect]
     Active Substance: SAXAGLIPTIN
     Indication: DIABETES MELLITUS
     Route: 048
     Dates: start: 20160618, end: 20160726

REACTIONS (6)
  - Arthralgia [None]
  - Diarrhoea [None]
  - Malaise [None]
  - Thrombocytopenia [None]
  - Transaminases increased [None]
  - Myalgia [None]

NARRATIVE: CASE EVENT DATE: 20160618
